FAERS Safety Report 9602859 (Version 1)
Quarter: 2013Q4

REPORT INFORMATION
  Report Type: Spontaneous
  Country: GB (occurrence: GB)
  Receive Date: 20131007
  Receipt Date: 20131007
  Transmission Date: 20140711
  Serious: Yes (Hospitalization, Other)
  Sender: FDA-Public Use
  Company Number: GB-PFIZER INC-2013282318

PATIENT
  Age: 43 Year
  Sex: Female

DRUGS (1)
  1. PREGABALIN [Suspect]
     Indication: PAIN
     Dosage: STARTED AT THIS DOSE
     Route: 048
     Dates: start: 20130901, end: 20130907

REACTIONS (2)
  - Encephalopathy [Recovered/Resolved]
  - Psychotic disorder [Unknown]
